FAERS Safety Report 9357028 (Version 1)
Quarter: 2013Q2

REPORT INFORMATION
  Report Type: Spontaneous
  Country: IL (occurrence: None)
  Receive Date: 20130617
  Receipt Date: 20130617
  Transmission Date: 20140414
  Serious: Yes (Death)
  Sender: FDA-Public Use
  Company Number: 2013-2533

PATIENT
  Age: 56 Year
  Sex: Male
  Weight: 60 kg

DRUGS (1)
  1. SOMATULINE [Suspect]
     Indication: NEUROENDOCRINE TUMOUR
     Dosage: DOSAGE TAKEN EVERY 28 DAYS.
     Dates: start: 20130131, end: 20130227

REACTIONS (1)
  - Death [None]
